FAERS Safety Report 10884890 (Version 1)
Quarter: 2015Q1

REPORT INFORMATION
  Report Type: Spontaneous
  Country: US (occurrence: US)
  Receive Date: 20150304
  Receipt Date: 20150304
  Transmission Date: 20150721
  Serious: No
  Sender: FDA-Public Use
  Company Number: US-TEVA-476310USA

PATIENT
  Sex: Female

DRUGS (1)
  1. AMOXICILLIN. [Suspect]
     Active Substance: AMOXICILLIN

REACTIONS (6)
  - Discomfort [Unknown]
  - Pain [Unknown]
  - Chest pain [Unknown]
  - Back pain [Unknown]
  - Abdominal pain upper [Unknown]
  - Incorrect product storage [Unknown]
